FAERS Safety Report 4905133-9 (Version None)
Quarter: 2006Q1

REPORT INFORMATION
  Report Type: 
  Country: None (occurrence: None)
  Receive Date: 20060208
  Receipt Date: 20051118
  Transmission Date: 20060701
  Serious: No
  Sender: FDA-Public Use
  Company Number: US-GLAXOSMITHKLINE-A0582882A

PATIENT
  Age: 76 Year
  Sex: Male

DRUGS (6)
  1. PAROXETINE HCL [Suspect]
     Dosage: 20MG PER DAY
     Route: 048
     Dates: start: 20051107, end: 20051111
  2. ATENOLOL [Concomitant]
  3. ATACAND [Concomitant]
     Route: 065
  4. LOTREL [Concomitant]
     Route: 065
  5. LIPITOR [Concomitant]
  6. NEXIUM [Concomitant]

REACTIONS (1)
  - HEADACHE [None]
